FAERS Safety Report 9103416 (Version 1)
Quarter: 2013Q1

REPORT INFORMATION
  Report Type: Spontaneous
  Country: US (occurrence: US)
  Receive Date: 20130218
  Receipt Date: 20130218
  Transmission Date: 20140127
  Serious: No
  Sender: FDA-Public Use
  Company Number: US-ASTRAZENECA-2013SE03342

PATIENT
  Age: 68 Year
  Sex: Female
  Weight: 41.3 kg

DRUGS (5)
  1. NEXIUM [Suspect]
     Indication: GASTROOESOPHAGEAL REFLUX DISEASE
     Route: 048
  2. NEXIUM [Suspect]
     Indication: GASTROOESOPHAGEAL REFLUX DISEASE
     Route: 048
     Dates: start: 201209, end: 201210
  3. NEXIUM [Suspect]
     Indication: GASTROOESOPHAGEAL REFLUX DISEASE
     Route: 048
     Dates: start: 201210
  4. SYNTHROID [Concomitant]
     Indication: HYPOTHYROIDISM
  5. CALCIUM SUPPLEMENTS [Concomitant]

REACTIONS (7)
  - Barrett^s oesophagus [Unknown]
  - Gastrointestinal erosion [Unknown]
  - Gastrooesophageal reflux disease [Unknown]
  - Hypothyroidism [Unknown]
  - Weight increased [Unknown]
  - Abdominal discomfort [Unknown]
  - Intentional drug misuse [Unknown]
